FAERS Safety Report 18182113 (Version 1)
Quarter: 2020Q3

REPORT INFORMATION
  Report Type: Spontaneous
  Country: US (occurrence: US)
  Receive Date: 20200821
  Receipt Date: 20200821
  Transmission Date: 20201103
  Serious: No
  Sender: FDA-Public Use
  Company Number: US-VERITY PHARMACEUTICALS, INC.-2020VTY00256

PATIENT
  Sex: Female

DRUGS (3)
  1. TRIPTORELIN PAMOATE [Suspect]
     Active Substance: TRIPTORELIN PAMOATE
     Route: 030
     Dates: start: 20171130, end: 20171130
  2. TRIPTORELIN PAMOATE [Suspect]
     Active Substance: TRIPTORELIN PAMOATE
     Dosage: 22.5 MG
     Route: 030
     Dates: start: 20180529, end: 20180529
  3. TRIPTORELIN PAMOATE [Suspect]
     Active Substance: TRIPTORELIN PAMOATE
     Dosage: 22.5 MG
     Route: 030

REACTIONS (5)
  - Asthenia [Unknown]
  - Flushing [Unknown]
  - Agitation [Unknown]
  - Pain in extremity [Unknown]
  - Mood swings [Not Recovered/Not Resolved]
